FAERS Safety Report 5247582-8 (Version None)
Quarter: 2007Q1

REPORT INFORMATION
  Report Type: 
  Country: None (occurrence: None)
  Receive Date: 20070227
  Receipt Date: 20070214
  Transmission Date: 20070707
  Serious: Yes (Other)
  Sender: FDA-Public Use
  Company Number: CA-BAYER-200710692GDS

PATIENT
  Age: 33 Year
  Sex: Female

DRUGS (2)
  1. CIPRO [Suspect]
     Indication: CROHN'S DISEASE
     Dosage: UNIT DOSE: 500 MG
     Route: 048
     Dates: start: 19890101
  2. METRONIDAZOLE [Concomitant]
     Indication: CROHN'S DISEASE
     Dosage: UNIT DOSE: 500 MG
     Route: 048
     Dates: start: 19890101

REACTIONS (2)
  - CATARACT [None]
  - LENS DISORDER [None]
